FAERS Safety Report 7519205-6 (Version None)
Quarter: 2011Q2

REPORT INFORMATION
  Report Type: 
  Country: None (occurrence: None)
  Receive Date: 20110602
  Receipt Date: 20110421
  Transmission Date: 20111010
  Serious: No
  Sender: FDA-Public Use
  Company Number: US-BRISTOL-MYERS SQUIBB COMPANY-15629884

PATIENT
  Age: 65 Year
  Sex: Male

DRUGS (6)
  1. CELEBREX [Concomitant]
  2. AVODART [Concomitant]
  3. KOMBIGLYZE XR [Suspect]
     Indication: TYPE 2 DIABETES MELLITUS
     Dosage: 1 DF:2.5/1000MG
     Dates: start: 20110228
  4. AVALIDE [Concomitant]
  5. UROXATRAL [Concomitant]
  6. LIPITOR [Concomitant]

REACTIONS (2)
  - BALANCE DISORDER [None]
  - DIVERTICULITIS [None]
